FAERS Safety Report 22057828 (Version 1)
Quarter: 2023Q1

REPORT INFORMATION
  Report Type: Report from Study
  Country: US (occurrence: US)
  Receive Date: 20230303
  Receipt Date: 20230303
  Transmission Date: 20230418
  Serious: No
  Sender: FDA-Public Use
  Company Number: US-ORG100014127-2022000907

PATIENT
  Age: 20 Year
  Sex: Female

DRUGS (10)
  1. METOPIRONE [Suspect]
     Active Substance: METYRAPONE
     Indication: Pituitary-dependent Cushing^s syndrome
     Dosage: TAKES 4 CAPSULES (1000 MG TOTAL) BY MOUTH TWICE DAILY
     Route: 048
     Dates: start: 20220203
  2. ALBUTEROL POW SULFATE [Concomitant]
     Indication: Product used for unknown indication
  3. CETIRIZINE TAB 10MG [Concomitant]
     Indication: Product used for unknown indication
  4. CITALOPRAM TAB 20MG [Concomitant]
     Indication: Product used for unknown indication
  5. ELIQUIS [Concomitant]
     Active Substance: APIXABAN
     Indication: Product used for unknown indication
  6. FLONASE ALGY SPR 50MCG [Concomitant]
     Indication: Product used for unknown indication
  7. HYDROXYZ HCL TAB 10MG [Concomitant]
     Indication: Product used for unknown indication
  8. MONTELUKAST  TAB 10MG [Concomitant]
     Indication: Product used for unknown indication
  9. OMEPRAZOLE [Concomitant]
     Active Substance: OMEPRAZOLE
     Indication: Product used for unknown indication
  10. PEPCID CHW COMPLETE [Concomitant]
     Indication: Product used for unknown indication

REACTIONS (3)
  - Fatigue [Not Recovered/Not Resolved]
  - Dizziness [Not Recovered/Not Resolved]
  - Off label use [Unknown]

NARRATIVE: CASE EVENT DATE: 20220101
